FAERS Safety Report 21597750 (Version 1)
Quarter: 2022Q4

REPORT INFORMATION
  Report Type: Spontaneous
  Country: US (occurrence: None)
  Receive Date: 20221114
  Receipt Date: 20221114
  Transmission Date: 20230113
  Serious: Yes (Death)
  Sender: FDA-Public Use
  Company Number: None

PATIENT
  Age: 72 Year
  Sex: Male

DRUGS (2)
  1. TACROLIMUS [Suspect]
     Active Substance: TACROLIMUS
     Indication: Pulmonary arterial hypertension
     Dosage: 0.5 MG TWICE DAILY ORAL?
     Route: 048
     Dates: start: 202009
  2. TACROLIMUS [Suspect]
     Active Substance: TACROLIMUS
     Indication: Pulmonary arterial hypertension
     Dosage: 1 MG TWICE DAILY ORAL
     Route: 048
     Dates: start: 202009

REACTIONS (3)
  - Loss of consciousness [None]
  - Head injury [None]
  - Haemorrhage intracranial [None]

NARRATIVE: CASE EVENT DATE: 20221016
